FAERS Safety Report 6583471-4 (Version None)
Quarter: 2010Q1

REPORT INFORMATION
  Report Type: 
  Country: None (occurrence: None)
  Receive Date: 20100216
  Receipt Date: 20100126
  Transmission Date: 20100710
  Serious: Yes (Other)
  Sender: FDA-Public Use
  Company Number: SE-SANOFI-AVENTIS-2010SA006962

PATIENT
  Sex: Male

DRUGS (2)
  1. LEUPRORELIN ACETATE [Suspect]
     Indication: DRUG USE FOR UNKNOWN INDICATION
     Route: 058
  2. LEUPRORELIN ACETATE [Suspect]
     Route: 058
     Dates: start: 20070403, end: 20070403

REACTIONS (3)
  - CONTUSION [None]
  - IMPAIRED HEALING [None]
  - SEPSIS [None]
